FAERS Safety Report 8812138 (Version 1)
Quarter: 2012Q4

REPORT INFORMATION
  Report Type: 
  Country: US (occurrence: US)
  Receive Date: 20120927
  Receipt Date: 20120927
  Transmission Date: 20130627
  Serious: Yes (Other)
  Sender: FDA-Public Use
  Company Number: US-ROCHE-1128671

PATIENT
  Sex: Male

DRUGS (3)
  1. AVASTIN [Suspect]
     Indication: RENAL CANCER
     Route: 065
     Dates: end: 20040621
  2. AVASTIN [Suspect]
     Indication: LUNG NEOPLASM MALIGNANT
  3. INTERLEUKIN 2 [Concomitant]

REACTIONS (3)
  - Deep vein thrombosis [Unknown]
  - Central nervous system lesion [Unknown]
  - Disease progression [Unknown]
